FAERS Safety Report 20504437 (Version 23)
Quarter: 2024Q1

REPORT INFORMATION
  Report Type: Spontaneous
  Country: CA (occurrence: CA)
  Receive Date: 20220222
  Receipt Date: 20240131
  Transmission Date: 20240410
  Serious: Yes (Hospitalization, Other)
  Sender: FDA-Public Use
  Company Number: CA-CELLTRION INC.-2020CA035197

PATIENT

DRUGS (48)
  1. INFLECTRA [Suspect]
     Active Substance: INFLIXIMAB-DYYB
     Indication: Crohn^s disease
     Dosage: 0, 2, 6, THEN EVERY 8 WEEKS
     Route: 042
     Dates: start: 20200619, end: 20200619
  2. INFLECTRA [Suspect]
     Active Substance: INFLIXIMAB-DYYB
     Dosage: 0, 2, 6, THEN EVERY 8 WEEKS
     Route: 042
     Dates: start: 20200703
  3. INFLECTRA [Suspect]
     Active Substance: INFLIXIMAB-DYYB
     Dosage: 0, 2, 6, THEN EVERY 8 WEEKS
     Route: 042
     Dates: start: 20200819
  4. INFLECTRA [Suspect]
     Active Substance: INFLIXIMAB-DYYB
     Dosage: 0, 2, 6, THEN EVERY 8 WEEKS
     Route: 042
     Dates: start: 20200925
  5. INFLECTRA [Suspect]
     Active Substance: INFLIXIMAB-DYYB
     Dosage: 0, 2, 6, THEN EVERY 8 WEEKS
     Route: 042
     Dates: start: 20201125
  6. INFLECTRA [Suspect]
     Active Substance: INFLIXIMAB-DYYB
     Dosage: 0, 2, 6 WEEKS (RE-INDUCTION), THEN EVERY 4 WEEKS
     Route: 042
     Dates: start: 20201218
  7. INFLECTRA [Suspect]
     Active Substance: INFLIXIMAB-DYYB
     Dosage: 0, 2, 6 WEEKS (RE-INDUCTION), THEN EVERY 4 WEEKS
     Route: 042
     Dates: start: 20210105
  8. INFLECTRA [Suspect]
     Active Substance: INFLIXIMAB-DYYB
     Dosage: 0, 2, 6 WEEKS (RE-INDUCTION), THEN EVERY 4 WEEKS)
     Route: 042
     Dates: start: 20210407
  9. INFLECTRA [Suspect]
     Active Substance: INFLIXIMAB-DYYB
     Dosage: 0, 2, 6 WEEKS (RE-INDUCTION), THEN EVERY 4 WEEKS)
     Route: 042
     Dates: start: 20210423
  10. INFLECTRA [Suspect]
     Active Substance: INFLIXIMAB-DYYB
     Dosage: 0, 2, 6 WEEKS (RE-INDUCTION), THEN EVERY 4 WEEKS)
     Route: 042
     Dates: start: 20210423
  11. INFLECTRA [Suspect]
     Active Substance: INFLIXIMAB-DYYB
     Dosage: 0, 2, 6 WEEKS (RE-INDUCTION), THEN EVERY 4 WEEKS
     Route: 042
     Dates: start: 20210519
  12. INFLECTRA [Suspect]
     Active Substance: INFLIXIMAB-DYYB
     Dosage: 0, 2, 6 WEEKS (RE-INDUCTION), THEN EVERY 4 WEEKS
     Route: 042
     Dates: start: 20210616
  13. INFLECTRA [Suspect]
     Active Substance: INFLIXIMAB-DYYB
     Dosage: 0, 2, 6 WEEKS (RE-INDUCTION), THEN EVERY 4 WEEKS
     Route: 042
     Dates: start: 20210722
  14. INFLECTRA [Suspect]
     Active Substance: INFLIXIMAB-DYYB
     Dosage: 0, 2, 6 WEEKS (RE-INDUCTION), THEN EVERY 4 WEEKS
     Route: 042
     Dates: start: 20210909
  15. INFLECTRA [Suspect]
     Active Substance: INFLIXIMAB-DYYB
     Dosage: 0, 2, 6 WEEKS (RE-INDUCTION), THEN EVERY 4 WEEKS
     Route: 042
     Dates: start: 20211007
  16. INFLECTRA [Suspect]
     Active Substance: INFLIXIMAB-DYYB
     Dosage: 0, 2, 6 WEEKS (RE-INDUCTION), THEN EVERY 4 WEEK
     Route: 042
     Dates: start: 20211026
  17. INFLECTRA [Suspect]
     Active Substance: INFLIXIMAB-DYYB
     Dosage: 0, 2, 6 WEEKS (RE-INDUCTION), THEN EVERY 4 WEEKSRELOAD
     Route: 042
     Dates: start: 20211026
  18. INFLECTRA [Suspect]
     Active Substance: INFLIXIMAB-DYYB
     Dosage: 0, 2, 6 WEEKS (RE-INDUCTION), THEN EVERY 4 WEEKS
     Route: 042
     Dates: start: 20211201
  19. INFLECTRA [Suspect]
     Active Substance: INFLIXIMAB-DYYB
     Dosage: 0, 2, 6 WEEKS (RE-INDUCTION), THEN EVERY 4 WEEKS
     Route: 042
     Dates: start: 20211201
  20. INFLECTRA [Suspect]
     Active Substance: INFLIXIMAB-DYYB
     Dosage: 0, 2, 6 WEEKS (RE-INDUCTION), THEN EVERY 4 WEEKS
     Route: 042
     Dates: start: 20211231
  21. INFLECTRA [Suspect]
     Active Substance: INFLIXIMAB-DYYB
     Dosage: 0, 2, 6 WEEKS (RE-INDUCTION), THEN EVERY 4 WEEKS
     Route: 042
     Dates: start: 20220318
  22. INFLECTRA [Suspect]
     Active Substance: INFLIXIMAB-DYYB
     Dosage: 0, 2, 6 WEEKS (RE-INDUCTION), THEN EVERY 4 WEEKS
     Route: 042
     Dates: start: 20220509
  23. INFLECTRA [Suspect]
     Active Substance: INFLIXIMAB-DYYB
     Dosage: 0, 2, 6 WEEKS (RE-INDUCTION), THEN EVERY 4 WEEKS
     Route: 042
     Dates: start: 20220606
  24. INFLECTRA [Suspect]
     Active Substance: INFLIXIMAB-DYYB
     Dosage: 0, 2, 6 WEEKS (RE-INDUCTION), THEN EVERY 4 WEEKS
     Route: 042
     Dates: start: 20220704
  25. INFLECTRA [Suspect]
     Active Substance: INFLIXIMAB-DYYB
     Dosage: 0, 2, 6 WEEKS (RE-INDUCTION), THEN EVERY 4 WEEKS
     Route: 042
     Dates: start: 20220725
  26. INFLECTRA [Suspect]
     Active Substance: INFLIXIMAB-DYYB
     Dosage: RELOAD AT WEEK 2, 6 THEN Q 4 WEEKS
     Route: 042
     Dates: start: 20220822
  27. INFLECTRA [Suspect]
     Active Substance: INFLIXIMAB-DYYB
     Dosage: RELOAD AT WEEK 2, 6 THEN Q 4 WEEKS
     Route: 042
     Dates: start: 20220921
  28. INFLECTRA [Suspect]
     Active Substance: INFLIXIMAB-DYYB
     Dosage: RELOAD AT WEEK 2, 6 THEN Q 4 WEEKS
     Route: 042
     Dates: start: 20221018
  29. INFLECTRA [Suspect]
     Active Substance: INFLIXIMAB-DYYB
     Dosage: RELOAD AT WEEK 2, 6 THEN Q 4 WEEKS
     Route: 042
     Dates: start: 20221019
  30. INFLECTRA [Suspect]
     Active Substance: INFLIXIMAB-DYYB
     Dosage: RELOAD AT WEEK 2, 6 THEN Q 4 WEEKS
     Route: 042
     Dates: start: 20230111
  31. INFLECTRA [Suspect]
     Active Substance: INFLIXIMAB-DYYB
     Dosage: RELOAD AT WEEK 2, 6 THEN Q 4 WEEKS
     Route: 042
     Dates: start: 20230217
  32. INFLECTRA [Suspect]
     Active Substance: INFLIXIMAB-DYYB
     Dosage: EVERY 4 WEEKS
     Route: 042
     Dates: start: 20230317
  33. INFLECTRA [Suspect]
     Active Substance: INFLIXIMAB-DYYB
     Dosage: EVERY 4 WEEKS
     Route: 042
     Dates: start: 20230418
  34. INFLECTRA [Suspect]
     Active Substance: INFLIXIMAB-DYYB
     Dosage: RELOAD AT WEEK 2, 6 THEN Q 4 WEEKS
     Route: 042
     Dates: start: 20230515
  35. INFLECTRA [Suspect]
     Active Substance: INFLIXIMAB-DYYB
     Dosage: EVERY 4 WEEKS
     Route: 042
     Dates: start: 20230612
  36. INFLECTRA [Suspect]
     Active Substance: INFLIXIMAB-DYYB
     Dosage: EVERY 4 WEEKS
     Route: 042
     Dates: start: 20230809
  37. INFLECTRA [Suspect]
     Active Substance: INFLIXIMAB-DYYB
     Dosage: EVERY 4 WEEKS
     Route: 042
     Dates: start: 20230915
  38. INFLECTRA [Suspect]
     Active Substance: INFLIXIMAB-DYYB
     Dosage: 300 MG EVERY 4 WEEKS
     Route: 042
     Dates: start: 20231013
  39. INFLECTRA [Suspect]
     Active Substance: INFLIXIMAB-DYYB
     Dosage: 300 MG, RELOAD AT WEEK 2, 6 THEN Q 4 WEEKS
     Route: 042
     Dates: start: 20231110
  40. INFLECTRA [Suspect]
     Active Substance: INFLIXIMAB-DYYB
     Dosage: 300 MG AFTER 6 WEEKS
     Route: 042
     Dates: start: 20231221
  41. IMURAN [Concomitant]
     Active Substance: AZATHIOPRINE
     Dosage: 50 MG, DAILY
     Route: 065
     Dates: start: 2019
  42. IMURAN [Concomitant]
     Active Substance: AZATHIOPRINE
     Dosage: UNK
     Route: 065
  43. IMURAN [Concomitant]
     Active Substance: AZATHIOPRINE
     Dosage: UNK
     Route: 065
  44. IMURAN [Concomitant]
     Active Substance: AZATHIOPRINE
     Dosage: 1 DF DOSAGE IS UNKNOWN
     Route: 065
  45. MESALAMINE [Concomitant]
     Active Substance: MESALAMINE
     Dosage: 4.8 G
     Route: 065
     Dates: start: 2020
  46. MESALAMINE [Concomitant]
     Active Substance: MESALAMINE
     Dosage: UNK
     Route: 065
  47. MESALAMINE [Concomitant]
     Active Substance: MESALAMINE
     Dosage: UNK
     Route: 065
  48. MESALAMINE [Concomitant]
     Active Substance: MESALAMINE
     Dosage: 1 DF DOSAGE IS UNKNOWN
     Route: 065

REACTIONS (26)
  - Illness [Unknown]
  - Condition aggravated [Recovered/Resolved]
  - COVID-19 [Recovering/Resolving]
  - Loss of consciousness [Unknown]
  - Condition aggravated [Recovered/Resolved]
  - Oropharyngeal pain [Unknown]
  - Weight increased [Unknown]
  - Pain [Unknown]
  - Dizziness [Unknown]
  - Malaise [Recovered/Resolved]
  - Nausea [Not Recovered/Not Resolved]
  - Cough [Unknown]
  - Nasal congestion [Unknown]
  - Pyrexia [Unknown]
  - Arthralgia [Recovered/Resolved]
  - Gait disturbance [Unknown]
  - Nasopharyngitis [Recovered/Resolved]
  - Abscess [Recovered/Resolved]
  - Vomiting [Unknown]
  - Hypertension [Not Recovered/Not Resolved]
  - Influenza [Recovered/Resolved]
  - Off label use [Unknown]
  - Off label use [Unknown]
  - Intentional product use issue [Unknown]
  - Inappropriate schedule of product administration [Unknown]
  - Product dose omission issue [Unknown]

NARRATIVE: CASE EVENT DATE: 20200619
